FAERS Safety Report 10245911 (Version 2)
Quarter: 2014Q2

REPORT INFORMATION
  Report Type: Spontaneous
  Country: US (occurrence: US)
  Receive Date: 20140619
  Receipt Date: 20140619
  Transmission Date: 20141212
  Serious: Yes (Other)
  Sender: FDA-Public Use
  Company Number: US-AMGEN-USASP2014038564

PATIENT
  Age: 77 Year
  Sex: Female
  Weight: 44.9 kg

DRUGS (10)
  1. PROLIA [Suspect]
     Indication: OSTEOPOROSIS POSTMENOPAUSAL
     Dosage: 60 MG, Q6MO
     Route: 058
     Dates: start: 20130917, end: 20140514
  2. CALCIUM [Concomitant]
     Indication: OSTEOPOROSIS
     Dosage: 200 IU, QD
     Route: 048
  3. VITAMIN D                          /00107901/ [Concomitant]
     Dosage: 600 MG, QD
     Route: 048
  4. DENAVIR [Concomitant]
     Dosage: 1 APPLICATION TOPICAL Q2-3H WHILE AWAKE PER FOUR DAY
     Route: 061
  5. FLAXSEED OIL [Concomitant]
     Dosage: 1000 MG, UNK
     Route: 048
  6. FIORINAL                           /00090401/ [Concomitant]
     Indication: HEADACHE
     Dosage: 1 DF, BID AS NECESSARY
     Route: 048
  7. KAYEXALATE [Concomitant]
     Dosage: 15 G, ONE TIME/ TWO DAY
     Route: 048
  8. METAMUCIL                          /00029101/ [Concomitant]
     Dosage: 5 ML, QD
     Route: 048
  9. MVI                                /01825701/ [Concomitant]
     Dosage: 1 DF, QD
     Route: 048
  10. TIMOPTIC [Concomitant]
     Dosage: 1 DROP I BOTH EYES EVERY DAY  FOR 90 DAYS

REACTIONS (5)
  - Bronchitis [Recovering/Resolving]
  - Glaucoma [Unknown]
  - Headache [Unknown]
  - Sleep disorder due to a general medical condition [Unknown]
  - Upper respiratory tract infection [Unknown]
